FAERS Safety Report 8608069 (Version 5)
Quarter: 2014Q2

REPORT INFORMATION
  Report Type: Spontaneous
  Country: US (occurrence: US)
  Receive Date: 20120611
  Receipt Date: 20140403
  Transmission Date: 20141212
  Serious: Yes (Disabling, Other)
  Sender: FDA-Public Use
  Company Number: US-ASTRAZENECA-2012SE35509

PATIENT
  Age: 50 Year
  Sex: Female
  Weight: 99.8 kg

DRUGS (30)
  1. NEXIUM [Suspect]
     Route: 048
     Dates: start: 2001
  2. NEXIUM [Suspect]
     Route: 048
     Dates: start: 20020923
  3. NEXIUM [Suspect]
     Route: 048
     Dates: start: 20060322, end: 20060828
  4. HYDROCODONE [Concomitant]
     Dates: start: 20130401
  5. NORTRIPTYLINE [Concomitant]
  6. VENLAFAXINE [Concomitant]
     Dates: start: 20130401
  7. HYDROCHLOROTHIAZIDE [Concomitant]
  8. NAPROXEN [Concomitant]
  9. BACLOFEN [Concomitant]
  10. GABAPENTIN [Concomitant]
  11. PRILOSEC [Concomitant]
  12. CYMBALTA [Concomitant]
  13. FERROUS SULFATE [Concomitant]
     Dates: start: 20111116
  14. PANTOPRAZOLE [Concomitant]
     Dates: start: 20111116
  15. AUGMENTIN [Concomitant]
  16. DIAZEPAM [Concomitant]
  17. SULINDAC [Concomitant]
  18. CARISOPRODOL [Concomitant]
  19. ALPRAZOLAM [Concomitant]
  20. PAXIL [Concomitant]
     Dates: start: 20020924
  21. CLARINEX [Concomitant]
     Dates: start: 20020923
  22. PREVACID [Concomitant]
     Dates: start: 20020612
  23. LEVAQUIN [Concomitant]
     Dates: start: 20020612
  24. FLUOXETINE [Concomitant]
     Route: 048
     Dates: start: 20091218
  25. ENALAPRIL [Concomitant]
     Indication: BLOOD PRESSURE ABNORMAL
     Route: 048
     Dates: start: 20060621, end: 20060706
  26. PIROXICAM [Concomitant]
     Route: 048
     Dates: start: 20050818, end: 20060818
  27. INDOMETHACIN [Concomitant]
     Route: 048
     Dates: start: 20050519, end: 20060828
  28. CLINDAMYCIN HCL [Concomitant]
     Route: 048
     Dates: start: 20061024, end: 20071024
  29. METRONIDAZOLE [Concomitant]
     Route: 048
     Dates: start: 20051227, end: 20060828
  30. FLUCONAZOLE [Concomitant]
     Dosage: TAKE 1 TAB FOR ONE DOSE
     Route: 048
     Dates: start: 20051227, end: 20060828

REACTIONS (12)
  - Musculoskeletal pain [Unknown]
  - Arthropathy [Unknown]
  - Back disorder [Unknown]
  - Joint dislocation [Unknown]
  - Osteoporosis [Unknown]
  - Multiple fractures [Unknown]
  - Upper limb fracture [Unknown]
  - Arthritis [Unknown]
  - Hand fracture [Unknown]
  - Foot fracture [Unknown]
  - Fall [Unknown]
  - Depression [Unknown]
